FAERS Safety Report 6516468-0 (Version None)
Quarter: 2009Q4

REPORT INFORMATION
  Report Type: 
  Country: None (occurrence: None)
  Receive Date: 20091223
  Receipt Date: 20091214
  Transmission Date: 20100525
  Serious: Yes (Death, Life-Threatening, Hospitalization, Other)
  Sender: FDA-Public Use
  Company Number: US-BAXTER-2009BH019472

PATIENT
  Sex: Male

DRUGS (4)
  1. HEPARIN SODIUM INJECTION [Suspect]
     Indication: THROMBOSIS PROPHYLAXIS
     Route: 042
     Dates: start: 20070901, end: 20071229
  2. HEPARIN SODIUM INJECTION [Suspect]
     Indication: THROMBECTOMY
     Route: 042
     Dates: start: 20070901, end: 20071229
  3. HEPARIN SODIUM INJECTION [Suspect]
     Route: 065
     Dates: start: 20071228, end: 20071228
  4. HEPARIN SODIUM INJECTION [Suspect]
     Route: 065
     Dates: start: 20071228, end: 20071228

REACTIONS (9)
  - ARTERIOVENOUS FISTULA THROMBOSIS [None]
  - CARDIOGENIC SHOCK [None]
  - DEATH [None]
  - HYPOTENSION [None]
  - LEUKOCYTOSIS [None]
  - PLATELET COUNT DECREASED [None]
  - SEPSIS [None]
  - TACHYCARDIA [None]
  - VENTRICULAR TACHYCARDIA [None]
